FAERS Safety Report 5416738-3 (Version None)
Quarter: 2007Q3

REPORT INFORMATION
  Report Type: 
  Country: None (occurrence: None)
  Receive Date: 20070816
  Receipt Date: 20070809
  Transmission Date: 20080115
  Serious: Yes (Hospitalization)
  Sender: FDA-Public Use
  Company Number: B0483269A

PATIENT
  Age: 26 Year
  Sex: Female

DRUGS (2)
  1. RANITIDINE [Suspect]
     Indication: EPIGASTRIC DISCOMFORT
     Route: 048
     Dates: start: 20070802, end: 20070802
  2. DOXYCYCLINE HYDROCHLORIDE [Suspect]
     Indication: BRUCELLOSIS
     Dosage: 100MG TWICE PER DAY
     Route: 048
     Dates: start: 20070802, end: 20070802

REACTIONS (2)
  - HEADACHE [None]
  - RASH PRURITIC [None]
